FAERS Safety Report 9440125 (Version 1)
Quarter: 2013Q3

REPORT INFORMATION
  Report Type: Spontaneous
  Country: US (occurrence: US)
  Receive Date: 20130805
  Receipt Date: 20130805
  Transmission Date: 20140515
  Serious: Yes (Hospitalization, Other)
  Sender: FDA-Public Use
  Company Number: US-PFIZER INC-2013225491

PATIENT
  Age: 25 Year
  Sex: Female
  Weight: 52.15 kg

DRUGS (2)
  1. DILANTIN [Suspect]
     Indication: EPILEPSY
     Dosage: 300 MG (TWO 100MG IN MORNING AND ONE 100MG AT NIGHT ), A DAY
     Route: 048
  2. TOPAMAX [Concomitant]
     Dosage: UNK

REACTIONS (3)
  - Convulsion [Unknown]
  - Anticonvulsant drug level decreased [Unknown]
  - Memory impairment [Unknown]
